FAERS Safety Report 24342599 (Version 3)
Quarter: 2024Q4

REPORT INFORMATION
  Report Type: Spontaneous
  Country: CA (occurrence: CA)
  Receive Date: 20240920
  Receipt Date: 20241116
  Transmission Date: 20250115
  Serious: Yes (Hospitalization)
  Sender: CELLTRION
  Company Number: CA-PFIZER INC-202400255642

PATIENT

DRUGS (2)
  1. INFLECTRA [Suspect]
     Active Substance: INFLIXIMAB-DYYB
     Indication: Crohn^s disease
     Dosage: 500 MG, EVERY 4 WEEKS
     Route: 042
     Dates: start: 20240815
  2. CODEINE [Concomitant]
     Active Substance: CODEINE
     Dosage: 1 DF, DOSAGE NOT AVAILABLE
     Route: 065

REACTIONS (3)
  - Femur fracture [Recovering/Resolving]
  - Fall [Recovering/Resolving]
  - Patella fracture [Recovering/Resolving]

NARRATIVE: CASE EVENT DATE: 20240101
